FAERS Safety Report 8748605 (Version 2)
Quarter: 2012Q4

REPORT INFORMATION
  Report Type: 
  Country: US (occurrence: US)
  Receive Date: 20120827
  Receipt Date: 20121002
  Transmission Date: 20130627
  Serious: Yes (Other)
  Sender: FDA-Public Use
  Company Number: US-PFIZER INC-2012207569

PATIENT
  Age: 61 Year
  Sex: Female
  Weight: 74.83 kg

DRUGS (5)
  1. RELPAX [Suspect]
     Indication: MIGRAINE
     Dosage: 40mg+20mg or unk dose/8 to 12 hrs, as needed
  2. ADVIL [Suspect]
     Indication: HEADACHE
     Dosage: UNK, as needed
     Dates: start: 1997
  3. ADVIL [Suspect]
     Indication: PAIN
  4. ZOLOFT [Concomitant]
     Indication: DEPRESSION
     Dosage: ^125mg^ daily
  5. KLONOPIN [Concomitant]
     Indication: ANXIETY
     Dosage: 1mg daily

REACTIONS (1)
  - Coeliac disease [Recovered/Resolved]
